FAERS Safety Report 18445311 (Version 1)
Quarter: 2020Q4

REPORT INFORMATION
  Report Type: Spontaneous
  Country: US (occurrence: US)
  Receive Date: 20201030
  Receipt Date: 20201030
  Transmission Date: 20210114
  Serious: Yes (Other)
  Sender: FDA-Public Use
  Company Number: US-SUNOVION-2020SUN003172

PATIENT
  Sex: Female

DRUGS (2)
  1. LATUDA [Suspect]
     Active Substance: LURASIDONE HYDROCHLORIDE
     Dosage: 40 MG
     Route: 048
  2. LATUDA [Suspect]
     Active Substance: LURASIDONE HYDROCHLORIDE
     Dosage: 10 MG, QD
     Route: 048

REACTIONS (6)
  - Tic [Recovered/Resolved]
  - Tardive dyskinesia [Recovered/Resolved]
  - Memory impairment [Not Recovered/Not Resolved]
  - Akathisia [Recovered/Resolved]
  - Intentional underdose [Unknown]
  - Withdrawal syndrome [Unknown]
